FAERS Safety Report 8799725 (Version 1)
Quarter: 2012Q4

REPORT INFORMATION
  Report Type: 
  Country: FR (occurrence: FR)
  Receive Date: 20120919
  Receipt Date: 20120919
  Transmission Date: 20130627
  Serious: Yes (Other)
  Sender: FDA-Public Use
  Company Number: FR-AMGEN-FRASP2012058022

PATIENT
  Age: 48 Year
  Sex: Female
  Weight: 47 kg

DRUGS (1)
  1. NPLATE [Suspect]
     Indication: AUTOIMMUNE THROMBOCYTOPENIA
     Dosage: 100 mug, qwk
     Route: 058
     Dates: start: 20120119, end: 20120702

REACTIONS (2)
  - Toxic skin eruption [Recovered/Resolved]
  - Rash papular [Recovered/Resolved]
